FAERS Safety Report 18521991 (Version 2)
Quarter: 2020Q4

REPORT INFORMATION
  Report Type: Report from Study
  Country: US (occurrence: US)
  Receive Date: 20201119
  Receipt Date: 20201221
  Transmission Date: 20210114
  Serious: Yes (Hospitalization, Other)
  Sender: FDA-Public Use
  Company Number: US-GLAXOSMITHKLINE-US2020TSO002386

PATIENT
  Age: 55 Year
  Sex: Female

DRUGS (4)
  1. NIRAPARIB [Suspect]
     Active Substance: NIRAPARIB
     Dosage: 200 UNK
     Route: 048
     Dates: start: 20191228
  2. NIRAPARIB [Suspect]
     Active Substance: NIRAPARIB
     Indication: CHEMOTHERAPY
     Dosage: 100 MG, BID
  3. NIRAPARIB [Suspect]
     Active Substance: NIRAPARIB
     Indication: OVARIAN CANCER
     Dosage: 300 MG, QD
     Dates: start: 20191227
  4. NIRAPARIB [Suspect]
     Active Substance: NIRAPARIB
     Indication: NEOPLASM
     Dosage: 2 DF, QD

REACTIONS (10)
  - White blood cell count increased [Unknown]
  - Adverse drug reaction [Unknown]
  - Asthenia [Unknown]
  - Wound infection [Unknown]
  - Head injury [Unknown]
  - Diabetes mellitus [Unknown]
  - Pain [Unknown]
  - Skin discolouration [Unknown]
  - Inappropriate schedule of product administration [Unknown]
  - Intraocular pressure increased [Unknown]

NARRATIVE: CASE EVENT DATE: 20191231
